FAERS Safety Report 17565559 (Version 1)
Quarter: 2020Q1

REPORT INFORMATION
  Report Type: Spontaneous
  Country: US (occurrence: US)
  Receive Date: 20200314
  Receipt Date: 20200314
  Transmission Date: 20200409
  Serious: No
  Sender: FDA-Public Use
  Company Number: None

PATIENT
  Age: 38 Year
  Sex: Female

DRUGS (1)
  1. IBRANCE [Suspect]
     Active Substance: PALBOCICLIB
     Indication: PULMONARY MASS
     Dosage: ?          OTHER FREQUENCY:21 DAYS ON, 7 OFF;?
     Route: 048
     Dates: start: 202001

REACTIONS (4)
  - Pain in extremity [None]
  - Arthritis [None]
  - Musculoskeletal pain [None]
  - Arthralgia [None]

NARRATIVE: CASE EVENT DATE: 202001
